FAERS Safety Report 7385114-9 (Version None)
Quarter: 2011Q1

REPORT INFORMATION
  Report Type: 
  Country: None (occurrence: None)
  Receive Date: 20110330
  Receipt Date: 20100908
  Transmission Date: 20110831
  Serious: Yes (Hospitalization)
  Sender: FDA-Public Use
  Company Number: US-BAYER-200941012NA

PATIENT
  Sex: Female
  Weight: 65.76 kg

DRUGS (9)
  1. YAZ [Suspect]
     Indication: ACNE
  2. NSAID'S [Concomitant]
  3. CLARITIN-D [Concomitant]
  4. ZYRTEC [Concomitant]
  5. UNCODEABLE ^UNCLASSIFIABLE^ [Concomitant]
  6. YAZ [Suspect]
     Indication: CONTRACEPTION
     Dosage: UNK
     Dates: start: 20071102, end: 20080801
  7. ROCEPHIN [Concomitant]
  8. FLONASE [Concomitant]
  9. PROMETHAZINE W/ CODEINE [Concomitant]

REACTIONS (2)
  - PAIN [None]
  - PULMONARY EMBOLISM [None]
